FAERS Safety Report 19501114 (Version 1)
Quarter: 2021Q3

REPORT INFORMATION
  Report Type: Spontaneous
  Country: CN (occurrence: CN)
  Receive Date: 20210707
  Receipt Date: 20210707
  Transmission Date: 20211014
  Serious: Yes (Other)
  Sender: FDA-Public Use
  Company Number: CN-ROCHE-2861907

PATIENT
  Age: 54 Year
  Sex: Male

DRUGS (17)
  1. VINCRISTINE [Concomitant]
     Active Substance: VINCRISTINE
     Indication: LYMPHOPROLIFERATIVE DISORDER
     Dosage: IN AUG/2019, NOV/2019, DEC/2019, JAN/2020, FEB/2020
     Dates: start: 201908
  2. CYCLOPHOSPHAMIDE. [Concomitant]
     Active Substance: CYCLOPHOSPHAMIDE
     Indication: LYMPHOPROLIFERATIVE DISORDER
     Dosage: IN AUG/2019, NOV/2019, DEC/2019, JAN/2020, FEB/2020
     Dates: start: 201908
  3. PREDNISONE. [Concomitant]
     Active Substance: PREDNISONE
     Dates: start: 20210205
  4. LENALIDOMIDE [Concomitant]
     Active Substance: LENALIDOMIDE
     Indication: LYMPHOPROLIFERATIVE DISORDER
  5. MABTHERA [Suspect]
     Active Substance: RITUXIMAB
     Dosage: IN AUG/2019, NOV/2019, DEC/2019, JAN/2020, FEB/2020
     Route: 065
     Dates: start: 202003
  6. IBRUTINIB [Concomitant]
     Active Substance: IBRUTINIB
     Indication: LYMPHOPROLIFERATIVE DISORDER
     Dates: start: 202006
  7. IBRUTINIB [Concomitant]
     Active Substance: IBRUTINIB
     Dates: start: 20210205
  8. IBRUTINIB [Concomitant]
     Active Substance: IBRUTINIB
     Dosage: AT 3 TABLETS PER DAY
     Route: 048
  9. MABTHERA [Suspect]
     Active Substance: RITUXIMAB
     Indication: LYMPHOPROLIFERATIVE DISORDER
     Dosage: IN AUG/2019, NOV/2019, DEC/2019, JAN/2020, FEB/2020. R?CHOP REGIMEN
     Route: 065
     Dates: start: 201908
  10. DOXORUBICIN [Concomitant]
     Active Substance: DOXORUBICIN
     Indication: LYMPHOPROLIFERATIVE DISORDER
     Dosage: IN AUG 2019, NOV 2019, DEC 2019, JAN 2020, FEB 2020. R?CHOP REGIMEN
     Dates: start: 201908
  11. IBRUTINIB [Concomitant]
     Active Substance: IBRUTINIB
  12. PREDNISONE. [Concomitant]
     Active Substance: PREDNISONE
     Indication: LYMPHOPROLIFERATIVE DISORDER
     Dosage: IN AUG/2019, NOV/2019, DEC/2019, JAN/2020, FEB/2020
     Dates: start: 201908
  13. PREDNISONE. [Concomitant]
     Active Substance: PREDNISONE
  14. DEXAMETHASONE. [Concomitant]
     Active Substance: DEXAMETHASONE
     Indication: LYMPHOPROLIFERATIVE DISORDER
     Dosage: 10MG PER DAY (3 DAYS WAS WITHDRAWAL)
     Route: 048
  15. HUMAN IMMUNOGLOBULIN [Concomitant]
     Indication: LYMPHOPROLIFERATIVE DISORDER
     Dosage: AT 20G PER DAY FOR 5 DAYS
     Route: 041
  16. IBRUTINIB [Concomitant]
     Active Substance: IBRUTINIB
     Dates: start: 202010
  17. VENETOCLAX. [Concomitant]
     Active Substance: VENETOCLAX
     Indication: LYMPHOPROLIFERATIVE DISORDER
     Dates: start: 202010

REACTIONS (6)
  - Off label use [Unknown]
  - Sepsis [Unknown]
  - Anaemia [Unknown]
  - Pneumocystis jirovecii pneumonia [Unknown]
  - Pneumonitis [Recovering/Resolving]
  - Acute respiratory distress syndrome [Unknown]

NARRATIVE: CASE EVENT DATE: 202010
